FAERS Safety Report 15499817 (Version 1)
Quarter: 2018Q4

REPORT INFORMATION
  Report Type: Spontaneous
  Country: US (occurrence: US)
  Receive Date: 20181008
  Receipt Date: 20181008
  Transmission Date: 20190205
  Serious: Yes (Other)
  Sender: FDA-Public Use
  Company Number: None

PATIENT
  Age: 75 Year
  Sex: Male
  Weight: 82 kg

DRUGS (1)
  1. EXPAREL [Suspect]
     Active Substance: BUPIVACAINE
     Indication: PROCEDURAL PAIN
     Dosage: ?          OTHER ROUTE:INJECTION?
     Dates: start: 20180821, end: 20180821

REACTIONS (3)
  - Phrenic nerve paralysis [None]
  - Abdominal pain [None]
  - Atelectasis [None]

NARRATIVE: CASE EVENT DATE: 20180821
